FAERS Safety Report 6983084-6 (Version None)
Quarter: 2010Q3

REPORT INFORMATION
  Report Type: 
  Country: None (occurrence: None)
  Receive Date: 20100914
  Receipt Date: 20100615
  Transmission Date: 20110219
  Serious: No
  Sender: FDA-Public Use
  Company Number: US-PFIZER INC-2010075427

PATIENT
  Age: 70 Year
  Sex: Female

DRUGS (14)
  1. LYRICA [Suspect]
     Indication: FIBROMYALGIA
     Dosage: 50 MG, 1X/DAY
     Route: 048
     Dates: start: 20100609, end: 20100609
  2. LYRICA [Suspect]
     Dosage: 50 MG, 2X/DAY
     Route: 048
     Dates: start: 20100610, end: 20100613
  3. LYRICA [Suspect]
     Dosage: 50 MG, 3X/DAY
     Route: 048
     Dates: start: 20100614
  4. BENICAR [Concomitant]
     Indication: HYPERTENSION
     Dosage: UNK
  5. LEVOXYL [Concomitant]
     Indication: THYROID DISORDER
     Dosage: UNK
  6. LIPITOR [Concomitant]
     Indication: BLOOD CHOLESTEROL INCREASED
     Dosage: UNK
  7. METFORMIN [Concomitant]
     Indication: GLUCOSE TOLERANCE IMPAIRED
     Dosage: 500 MG, 2X/DAY
  8. OMEPRAZOLE [Concomitant]
     Indication: GASTROOESOPHAGEAL REFLUX DISEASE
     Dosage: UNK
  9. MONTELUKAST [Concomitant]
     Indication: ASTHMA
     Dosage: UNK
  10. ALBUTEROL [Concomitant]
     Indication: ASTHMA
     Dosage: UNK
  11. ZOLPIDEM [Concomitant]
     Indication: SLEEP DISORDER
     Dosage: UNK
  12. PREDNISOLONE [Concomitant]
     Indication: TRANSPLANT
     Dosage: 2 DROPS, 1X/DAY
  13. VITAMIN D [Concomitant]
     Dosage: UNK
  14. CALCIUM [Concomitant]
     Dosage: UNK

REACTIONS (3)
  - BLISTER [None]
  - OROPHARYNGEAL PAIN [None]
  - PAIN IN EXTREMITY [None]
